FAERS Safety Report 7285750-4 (Version None)
Quarter: 2011Q1

REPORT INFORMATION
  Report Type: 
  Country: None (occurrence: None)
  Receive Date: 20110210
  Receipt Date: 20110127
  Transmission Date: 20110831
  Serious: Yes (Hospitalization)
  Sender: FDA-Public Use
  Company Number: US-CELGENEUS-163-21880-11012892

PATIENT
  Sex: Male
  Weight: 100.79 kg

DRUGS (23)
  1. UROXATRAL [Concomitant]
     Route: 065
  2. ASPIRIN [Concomitant]
     Route: 065
  3. PROMETHAZINE [Concomitant]
     Route: 065
  4. SOTALOL HCL [Concomitant]
     Route: 065
  5. REVLIMID [Suspect]
     Indication: MULTIPLE MYELOMA
     Route: 048
     Dates: start: 20110112
  6. LORTAB [Concomitant]
     Route: 065
  7. DEXAMETHASONE [Concomitant]
     Route: 065
  8. SENNA [Concomitant]
     Route: 065
  9. SIMVASTATIN [Concomitant]
     Route: 065
  10. SOMA [Concomitant]
     Route: 065
  11. ZOLOFT [Concomitant]
     Route: 065
  12. ALLOPURINOL [Concomitant]
     Route: 065
  13. DIGOXIN [Concomitant]
     Route: 065
  14. EXFORGE [Concomitant]
     Route: 048
  15. LASIX [Concomitant]
     Route: 065
  16. PEPCID [Concomitant]
     Route: 065
  17. POTASSIUM CHLORIDE [Concomitant]
     Route: 065
  18. FERROUS SULFATE TAB [Concomitant]
     Route: 065
  19. FOLIC ACID [Concomitant]
     Route: 065
  20. HUMALOG [Concomitant]
     Route: 065
  21. DOXYCYCLINE [Concomitant]
     Route: 048
  22. MORPHINE [Concomitant]
     Route: 065
  23. COMPAZINE [Concomitant]
     Route: 065

REACTIONS (1)
  - ARRHYTHMIA [None]
